FAERS Safety Report 6675812-4 (Version None)
Quarter: 2010Q2

REPORT INFORMATION
  Report Type: 
  Country: None (occurrence: None)
  Receive Date: 20100412
  Receipt Date: 20100331
  Transmission Date: 20101027
  Serious: Yes (Hospitalization, Other)
  Sender: FDA-Public Use
  Company Number: US-BIOGENIDEC-2008BI030063

PATIENT
  Sex: Female

DRUGS (8)
  1. AVONEX [Suspect]
     Indication: MULTIPLE SCLEROSIS
     Route: 030
     Dates: start: 20070423, end: 20081124
  2. AVONEX [Suspect]
     Route: 030
     Dates: start: 20090105
  3. GABAPENTIN [Concomitant]
     Indication: SENSORY DISTURBANCE
  4. GABAPENTIN [Concomitant]
     Indication: SPINAL FRACTURE
  5. ADDERALL 30 [Concomitant]
     Indication: SPINAL FRACTURE
     Dates: start: 20010301
  6. VALIUM [Concomitant]
     Indication: MAJOR DEPRESSION
  7. EFFEXOR [Concomitant]
     Indication: MAJOR DEPRESSION
  8. KENALOG [Concomitant]
     Indication: IMPAIRED HEALING
     Dates: start: 20030101

REACTIONS (34)
  - ABDOMINAL DISTENSION [None]
  - ANAEMIA [None]
  - ATROPHIC VULVOVAGINITIS [None]
  - BALANCE DISORDER [None]
  - BLADDER DISORDER [None]
  - BREAST HYPERPLASIA [None]
  - COAGULATION TIME PROLONGED [None]
  - DEPRESSION [None]
  - DYSPNOEA [None]
  - FAECES DISCOLOURED [None]
  - FALL [None]
  - FIBROCYSTIC BREAST DISEASE [None]
  - GASTROINTESTINAL HAEMORRHAGE [None]
  - GOUT [None]
  - HERPES ZOSTER [None]
  - HYPOAESTHESIA [None]
  - HYPOTONIA [None]
  - IMPLANT SITE REACTION [None]
  - INFLUENZA LIKE ILLNESS [None]
  - INJECTION SITE HAEMORRHAGE [None]
  - INJECTION SITE PAIN [None]
  - INJURY ASSOCIATED WITH DEVICE [None]
  - MASS [None]
  - MEMORY IMPAIRMENT [None]
  - NERVOUS SYSTEM DISORDER [None]
  - PRECANCEROUS CELLS PRESENT [None]
  - PRURITUS GENERALISED [None]
  - RASH PAPULAR [None]
  - SENSORY DISTURBANCE [None]
  - SKIN DISCOLOURATION [None]
  - SMEAR CERVIX ABNORMAL [None]
  - TINNITUS [None]
  - VULVOVAGINAL PRURITUS [None]
  - WOUND HAEMORRHAGE [None]
